FAERS Safety Report 11722675 (Version 4)
Quarter: 2016Q1

REPORT INFORMATION
  Report Type: Spontaneous
  Country: US (occurrence: US)
  Receive Date: 20151111
  Receipt Date: 20160302
  Transmission Date: 20160525
  Serious: No
  Sender: FDA-Public Use
  Company Number: US-PFIZER INC-2015380085

PATIENT
  Age: 75 Year
  Sex: Female
  Weight: 60 kg

DRUGS (18)
  1. VFEND [Suspect]
     Active Substance: VORICONAZOLE
     Dosage: 150 MG, 2X/DAY
  2. FUROSEMIDE. [Concomitant]
     Active Substance: FUROSEMIDE
     Dosage: 20 MG, UNK
     Dates: start: 2008
  3. ALPHAGAN P [Concomitant]
     Active Substance: BRIMONIDINE TARTRATE
     Dosage: 0.15 %, UNK (1 DROP R. EYE MORN AND EVE)
     Route: 047
     Dates: start: 2004
  4. VITAMIN C [Concomitant]
     Active Substance: ASCORBIC ACID
     Dosage: UNK, ALTERNATE DAY
  5. VFEND [Suspect]
     Active Substance: VORICONAZOLE
     Dosage: 250 MG, 2X/DAY, 50MG TABLETS, 5 TABLETS, TWICE A DAY
     Route: 048
     Dates: start: 201510
  6. VFEND [Suspect]
     Active Substance: VORICONAZOLE
     Dosage: 250 MG, 2X/DAY
     Route: 048
     Dates: start: 20151103
  7. VFEND [Suspect]
     Active Substance: VORICONAZOLE
     Dosage: 200 MG, 2X/DAY
     Route: 048
     Dates: start: 20151026
  8. MIRTAZAPINE. [Concomitant]
     Active Substance: MIRTAZAPINE
     Dosage: UNK (? OF 15 MG TAB)
     Dates: start: 201406
  9. ASPIRIN 81 [Concomitant]
     Active Substance: ASPIRIN
     Dosage: UNK
     Dates: start: 2000
  10. VFEND [Suspect]
     Active Substance: VORICONAZOLE
     Indication: BRONCHOPULMONARY ASPERGILLOSIS
     Dosage: 50 MG, 2X/DAY (50 MG TABX3,4,5)
     Route: 048
     Dates: start: 201501
  11. VFEND [Suspect]
     Active Substance: VORICONAZOLE
     Dosage: 3 DF, UNK
     Route: 048
     Dates: start: 201502
  12. LATANOPROST. [Concomitant]
     Active Substance: LATANOPROST
     Dosage: 0.005 %, UNK (2.5 M 1 DROPPER EYE)
     Route: 047
     Dates: start: 2004
  13. BENAZEPRIL HCL [Concomitant]
     Active Substance: BENAZEPRIL HYDROCHLORIDE
     Dosage: 20 MG, UNK
     Dates: start: 201406
  14. FLUOXETINE [Concomitant]
     Active Substance: FLUOXETINE HYDROCHLORIDE
     Dosage: 10 MG, UNK
     Dates: start: 201406, end: 20160211
  15. SOTALOL HCL [Concomitant]
     Active Substance: SOTALOL
     Dosage: 80 MG, UNK
     Dates: start: 201310
  16. BIOTIN [Concomitant]
     Active Substance: BIOTIN
     Dosage: 5000 UG, UNK
  17. SINGULAIR [Concomitant]
     Active Substance: MONTELUKAST SODIUM
     Dosage: 10 MG, UNK
     Dates: start: 2000
  18. CITRACAL + D /01438101/ [Concomitant]
     Dosage: UNK (CALCIUM 400 MG, VITAMIN D: 500 IU)
     Dates: start: 1995

REACTIONS (8)
  - Balance disorder [Recovered/Resolved]
  - Rash [Recovered/Resolved]
  - Alpha-1 anti-trypsin deficiency [Unknown]
  - Condition aggravated [Recovered/Resolved]
  - Haemoptysis [Unknown]
  - Lung infiltration [Unknown]
  - Visual impairment [Not Recovered/Not Resolved]
  - Head discomfort [Recovered/Resolved]

NARRATIVE: CASE EVENT DATE: 201406
